FAERS Safety Report 16273208 (Version 6)
Quarter: 2019Q2

REPORT INFORMATION
  Report Type: Spontaneous
  Country: US (occurrence: US)
  Receive Date: 20190506
  Receipt Date: 20190620
  Transmission Date: 20190711
  Serious: No
  Sender: FDA-Public Use
  Company Number: US-SHIRE-US201914545

PATIENT
  Age: 75 Year
  Sex: Female
  Weight: 79.37 kg

DRUGS (5)
  1. RESTORE [Concomitant]
     Active Substance: GLYCERIN
     Indication: DRY EYE
  2. INSULIN [Concomitant]
     Active Substance: INSULIN NOS
     Indication: DIABETES MELLITUS
  3. XIIDRA [Suspect]
     Active Substance: LIFITEGRAST
     Indication: DRY EYE
     Dosage: 1 GTT DROPS, 2X/DAY:BID
     Route: 047
     Dates: start: 2018, end: 2019
  4. SYSTANE (HYPROMELLOSE 2910 (4000 MPA.S)) [Concomitant]
     Active Substance: HYPROMELLOSE 2910 (4000 MPA.S)
     Indication: DRY EYE
  5. XIIDRA [Suspect]
     Active Substance: LIFITEGRAST
     Indication: EYE DISORDER
     Dosage: 1 GTT DROPS, 2X/DAY:BID
     Route: 047
     Dates: start: 20190206, end: 201903

REACTIONS (11)
  - Drug ineffective [Recovered/Resolved]
  - Instillation site pruritus [Recovered/Resolved]
  - Instillation site irritation [Recovered/Resolved]
  - Instillation site erythema [Recovered/Resolved]
  - Instillation site lacrimation [Recovered/Resolved]
  - Visual impairment [Recovering/Resolving]
  - Condition aggravated [Recovered/Resolved]
  - Photophobia [Recovered/Resolved]
  - Eye disorder [Recovered/Resolved]
  - Frustration tolerance decreased [Recovering/Resolving]
  - Instillation site pain [Not Recovered/Not Resolved]

NARRATIVE: CASE EVENT DATE: 201902
